FAERS Safety Report 17220608 (Version 2)
Quarter: 2020Q1

REPORT INFORMATION
  Report Type: Spontaneous
  Country: DE (occurrence: DE)
  Receive Date: 20191231
  Receipt Date: 20200117
  Transmission Date: 20200409
  Serious: Yes (Hospitalization)
  Sender: FDA-Public Use
  Company Number: DE-MYLANLABS-2019M1132019

PATIENT
  Age: 4 Year
  Sex: Female
  Weight: 23 kg

DRUGS (4)
  1. SALBUTAMOL [Suspect]
     Active Substance: ALBUTEROL
     Indication: BRONCHITIS
     Dosage: 5 MILLIGRAM PER MILLILITRE
     Route: 055
     Dates: start: 20190330
  2. IPRATROPIUM BROMIDE. [Concomitant]
     Active Substance: IPRATROPIUM BROMIDE
     Indication: BRONCHITIS
     Dosage: 20 MICROGRAM
     Route: 055
     Dates: start: 20190406, end: 20190409
  3. AMPICILLIN [Concomitant]
     Active Substance: AMPICILLIN
     Indication: ANTI-INFECTIVE THERAPY
     Dosage: 1 GRAM
     Route: 042
     Dates: start: 20190406, end: 20190409
  4. CLARITHROMYCIN. [Concomitant]
     Active Substance: CLARITHROMYCIN
     Indication: ANTI-INFECTIVE THERAPY
     Dosage: 250 MILLIGRAM
     Route: 048
     Dates: start: 20190406, end: 20190409

REACTIONS (4)
  - Cough [Recovering/Resolving]
  - Condition aggravated [Recovering/Resolving]
  - Pyrexia [Recovering/Resolving]
  - Respiratory failure [Recovering/Resolving]

NARRATIVE: CASE EVENT DATE: 20190331
